FAERS Safety Report 6020284-6 (Version None)
Quarter: 2008Q4

REPORT INFORMATION
  Report Type: 
  Country: None (occurrence: None)
  Receive Date: 20081223
  Receipt Date: 20081223
  Transmission Date: 20090506
  Serious: Yes (Other)
  Sender: FDA-Public Use
  Company Number: None

PATIENT
  Sex: Male
  Weight: 120 kg

DRUGS (8)
  1. SPIRONOLACTONE [Suspect]
     Dosage: 50MG TABLET 50 MG QD ORAL
     Route: 048
     Dates: start: 20081218, end: 20081222
  2. ALLOPURINOL [Concomitant]
  3. ATENOLOL [Concomitant]
  4. COLCHICINE [Concomitant]
  5. HYDROCHLOROTHIAZIDE [Concomitant]
  6. LISINOPRIL [Concomitant]
  7. LOVASTATIN [Concomitant]
  8. NORVASC [Concomitant]

REACTIONS (2)
  - HYPERKALAEMIA [None]
  - RENAL FAILURE [None]
